FAERS Safety Report 9888752 (Version 1)
Quarter: 2014Q1

REPORT INFORMATION
  Report Type: Spontaneous
  Country: US (occurrence: None)
  Receive Date: 20140210
  Receipt Date: 20140210
  Transmission Date: 20141002
  Serious: Yes (Other)
  Sender: FDA-Public Use
  Company Number: None

PATIENT
  Age: 51 Year
  Sex: Male
  Weight: 117.94 kg

DRUGS (1)
  1. CIALIS [Suspect]
     Indication: ERECTILE DYSFUNCTION
     Dates: start: 20130901, end: 20140126

REACTIONS (8)
  - Back pain [None]
  - Pain in extremity [None]
  - Musculoskeletal pain [None]
  - Dysstasia [None]
  - Panic attack [None]
  - Dizziness [None]
  - Middle insomnia [None]
  - Headache [None]
